FAERS Safety Report 19274109 (Version 2)
Quarter: 2021Q2

REPORT INFORMATION
  Report Type: Other
  Country: CN (occurrence: CN)
  Receive Date: 20210519
  Receipt Date: 20210630
  Transmission Date: 20210717
  Serious: Yes (Other)
  Sender: FDA-Public Use
  Company Number: CN-ROCHE-1832519

PATIENT
  Age: 61 Year
  Sex: Female
  Weight: 52.5 kg

DRUGS (2)
  1. PEMETREXED. [Concomitant]
     Active Substance: PEMETREXED
  2. AVASTIN [Suspect]
     Active Substance: BEVACIZUMAB
     Indication: RECTAL CANCER METASTATIC
     Route: 041
     Dates: start: 20150909

REACTIONS (13)
  - Blood glucose increased [Unknown]
  - Nasopharyngitis [Unknown]
  - Liver disorder [Unknown]
  - Liver function test abnormal [Unknown]
  - Toothache [Unknown]
  - Asthenia [Recovering/Resolving]
  - Hepatic function abnormal [Unknown]
  - Vision blurred [Unknown]
  - Dizziness [Unknown]
  - Diabetes mellitus [Recovering/Resolving]
  - Discomfort [Recovering/Resolving]
  - White blood cell count decreased [Unknown]
  - Asthenia [Unknown]

NARRATIVE: CASE EVENT DATE: 201607
